FAERS Safety Report 17077232 (Version 2)
Quarter: 2019Q4

REPORT INFORMATION
  Report Type: Report from Study
  Country: RO (occurrence: RO)
  Receive Date: 20191126
  Receipt Date: 20191127
  Transmission Date: 20200122
  Serious: Yes (Death, Other)
  Sender: FDA-Public Use
  Company Number: RO-AMGEN-ROUNI2019192591

PATIENT
  Age: 82 Year
  Sex: Male

DRUGS (9)
  1. CEFORT [Concomitant]
     Active Substance: CEFTRIAXONE SODIUM
     Indication: PRODUCT USED FOR UNKNOWN INDICATION
     Dosage: UNK
     Route: 048
  2. VENTOLIN [Concomitant]
     Active Substance: ALBUTEROL SULFATE
     Indication: ACUTE RESPIRATORY FAILURE
     Dosage: 2 DF, QD
     Route: 048
  3. EURESPAL [Concomitant]
     Active Substance: FENSPIRIDE HYDROCHLORIDE
     Indication: PRODUCT USED FOR UNKNOWN INDICATION
     Dosage: 2 DOSAGE FORM, QD
     Route: 048
  4. CORLENTOR [Suspect]
     Active Substance: IVABRADINE HYDROCHLORIDE
     Indication: PRODUCT USED FOR UNKNOWN INDICATION
     Dosage: 7.5 MILLIGRAM, QD
     Route: 065
     Dates: start: 20180421, end: 20180504
  5. SYMBICORT [Concomitant]
     Active Substance: BUDESONIDE\FORMOTEROL FUMARATE DIHYDRATE
     Indication: ACUTE RESPIRATORY FAILURE
     Dosage: UNK
     Route: 048
  6. ASPENTER [Concomitant]
     Active Substance: ASPIRIN
     Indication: PRODUCT USED FOR UNKNOWN INDICATION
     Dosage: UNK
     Route: 048
  7. OMERAN [Concomitant]
     Indication: PRODUCT USED FOR UNKNOWN INDICATION
     Dosage: UNK
  8. HYDROCORTISONE HYDROGEN SUCCINATE [Concomitant]
     Active Substance: HYDROCORTISONE HEMISUCCINATE ANHYDROUS
     Indication: PRODUCT USED FOR UNKNOWN INDICATION
     Dosage: UNK
     Route: 065
  9. DIUREX [FUROSEMIDE] [Concomitant]
     Indication: PRODUCT USED FOR UNKNOWN INDICATION
     Dosage: 1 DOSAGE FORM, EVERY 3 DAYS
     Route: 048

REACTIONS (2)
  - Product use issue [Recovered/Resolved]
  - Cardiopulmonary failure [Fatal]

NARRATIVE: CASE EVENT DATE: 20180421
